FAERS Safety Report 11880321 (Version 6)
Quarter: 2016Q3

REPORT INFORMATION
  Report Type: Report from Study
  Country: CO (occurrence: CO)
  Receive Date: 20151230
  Receipt Date: 20160808
  Transmission Date: 20161109
  Serious: Yes (Other)
  Sender: FDA-Public Use
  Company Number: PHHY2015CO098112

PATIENT
  Sex: Female
  Weight: 65 kg

DRUGS (8)
  1. LYRICA [Concomitant]
     Active Substance: PREGABALIN
     Indication: PRODUCT USED FOR UNKNOWN INDICATION
     Dosage: 75 MG, UNK
     Route: 065
  2. ATORVASTATIN [Concomitant]
     Active Substance: ATORVASTATIN
     Indication: BLOOD CHOLESTEROL ABNORMAL
     Dosage: 40 MG, UNK
     Route: 065
  3. BISACODYL. [Concomitant]
     Active Substance: BISACODYL
     Indication: CONSTIPATION
     Dosage: UNK DF, QD
     Route: 048
  4. AFINITOR [Suspect]
     Active Substance: EVEROLIMUS
     Indication: BREAST CANCER METASTATIC
     Dosage: 1 DF OF 5 MG, BID
     Route: 048
     Dates: start: 20150801
  5. EXEMESTANE. [Concomitant]
     Active Substance: EXEMESTANE
     Indication: BREAST CANCER
     Dosage: 25 MG, QD
     Route: 048
     Dates: start: 201508
  6. FLUOXETINE [Concomitant]
     Active Substance: FLUOXETINE HYDROCHLORIDE
     Indication: PRODUCT USED FOR UNKNOWN INDICATION
     Dosage: UNK DF, QD
     Route: 048
  7. CLONAZEPAM. [Concomitant]
     Active Substance: CLONAZEPAM
     Indication: SLEEP DISORDER
     Dosage: 20 MG, UNK
     Route: 065
  8. DOLEX FORTE [Concomitant]
     Indication: PAIN
     Dosage: UNK DF, PRN
     Route: 048

REACTIONS (12)
  - Dizziness [Unknown]
  - Myalgia [Unknown]
  - Stomatitis [Unknown]
  - Malignant neoplasm progression [Unknown]
  - Oral mucosal blistering [Unknown]
  - Vertigo [Not Recovered/Not Resolved]
  - Terminal state [Unknown]
  - Drug dispensing error [Unknown]
  - Hypoaesthesia [Unknown]
  - Drug interaction [Unknown]
  - Bone pain [Unknown]
  - Nausea [Unknown]
